FAERS Safety Report 6156559 (Version 3)
Quarter: 2015Q2

REPORT INFORMATION
  Report Type: Spontaneous
  Country: US (occurrence: US)
  Receive Date: 20061030
  Receipt Date: 20150512
  Transmission Date: 20150821
  Serious: No
  Sender: FDA-Public Use
  Company Number: US-GLAXOSMITHKLINE-A0586908A

PATIENT
  Age: 86 Year
  Sex: Female

DRUGS (15)
  1. ADVAIR HFA [Suspect]
     Active Substance: FLUTICASONE PROPIONATE\SALMETEROL XINAFOATE
     Indication: ASTHMA
     Dosage: UNK
     Dates: start: 20140501
  2. SINGULAIR [Concomitant]
     Active Substance: MONTELUKAST SODIUM
  3. POTASSIUM [Concomitant]
     Active Substance: POTASSIUM
  4. NEURONTIN [Concomitant]
     Active Substance: GABAPENTIN
  5. FISH OIL CAPSULES [Concomitant]
  6. NEXIUM [Concomitant]
     Active Substance: ESOMEPRAZOLE MAGNESIUM
  7. ADVAIR DISKUS [Suspect]
     Active Substance: FLUTICASONE PROPIONATE\SALMETEROL XINAFOATE
     Indication: ASTHMA
     Dosage: 115/21 MCG
     Route: 055
     Dates: start: 20080204, end: 20080218
  8. VITAMIN [Concomitant]
     Active Substance: VITAMINS
  9. ADVAIR DISKUS [Suspect]
     Active Substance: FLUTICASONE PROPIONATE\SALMETEROL XINAFOATE
     Dates: start: 200512
  10. FLONASE [Concomitant]
     Active Substance: FLUTICASONE PROPIONATE
  11. AMLODIPINE [Concomitant]
     Active Substance: AMLODIPINE BESYLATE
  12. DIOVAN [Concomitant]
     Active Substance: VALSARTAN
  13. ADVAIR DISKUS [Suspect]
     Active Substance: FLUTICASONE PROPIONATE\SALMETEROL XINAFOATE
     Indication: ASTHMA
     Route: 055
     Dates: start: 200512
  14. ALBUTEROL. [Concomitant]
     Active Substance: ALBUTEROL
  15. CALCIUM [Concomitant]
     Active Substance: CALCIUM

REACTIONS (13)
  - Respiratory tract congestion [Not Recovered/Not Resolved]
  - Productive cough [Unknown]
  - Paraesthesia [Unknown]
  - Dyspnoea [Unknown]
  - Headache [Unknown]
  - Paraesthesia oral [Unknown]
  - Malaise [Unknown]
  - Nasopharyngitis [Unknown]
  - Rhinorrhoea [Unknown]
  - Hypersensitivity [Unknown]
  - Rash pruritic [Unknown]
  - Muscle spasms [Unknown]
  - Cough [Unknown]

NARRATIVE: CASE EVENT DATE: 201411
